FAERS Safety Report 19841352 (Version 1)
Quarter: 2021Q3

REPORT INFORMATION
  Report Type: Spontaneous
  Country: US (occurrence: US)
  Receive Date: 20210915
  Receipt Date: 20210915
  Transmission Date: 20211014
  Serious: No
  Sender: FDA-Public Use
  Company Number: US-MILLICENT HOLDINGS LTD.-MILL20210744

PATIENT
  Age: 56 Year
  Sex: Female

DRUGS (4)
  1. FEMRING [Suspect]
     Active Substance: ESTRADIOL ACETATE
     Indication: VULVOVAGINAL DRYNESS
     Dosage: 0.10 MG
     Route: 067
     Dates: start: 20210815
  2. FEMRING [Suspect]
     Active Substance: ESTRADIOL ACETATE
     Indication: NIGHT SWEATS
     Dosage: 0.10 MG
     Route: 067
     Dates: start: 202105
  3. FEMRING [Suspect]
     Active Substance: ESTRADIOL ACETATE
     Indication: FATIGUE
  4. FEMRING [Suspect]
     Active Substance: ESTRADIOL ACETATE
     Indication: ARTHRALGIA

REACTIONS (7)
  - Night sweats [Unknown]
  - Arthralgia [Unknown]
  - Vulvovaginal dryness [Unknown]
  - Vaginal haemorrhage [Unknown]
  - Drug ineffective [Unknown]
  - Fatigue [Unknown]
  - Product dose omission issue [None]

NARRATIVE: CASE EVENT DATE: 20210815
